FAERS Safety Report 22528771 (Version 2)
Quarter: 2023Q2

REPORT INFORMATION
  Report Type: Report from Study
  Country: US (occurrence: US)
  Receive Date: 20230607
  Receipt Date: 20230619
  Transmission Date: 20230722
  Serious: Yes (Hospitalization)
  Sender: FDA-Public Use
  Company Number: US-JNJFOC-20230607325

PATIENT
  Age: 16 Year
  Sex: Female
  Weight: 44.9 kg

DRUGS (2)
  1. INFLIXIMAB [Suspect]
     Active Substance: INFLIXIMAB
     Indication: Crohn^s disease
     Route: 041
     Dates: start: 20121121, end: 20140731
  2. STELARA [Concomitant]
     Active Substance: USTEKINUMAB
     Dosage: DATE OF LAST ADMINISTRATION PRIOR TO THE EVENT ON 25-APR-2023
     Dates: start: 20170905

REACTIONS (1)
  - Selective eating disorder [Recovered/Resolved]

NARRATIVE: CASE EVENT DATE: 20230531
